FAERS Safety Report 9797761 (Version 1)
Quarter: 2014Q1

REPORT INFORMATION
  Report Type: Spontaneous
  Country: US (occurrence: US)
  Receive Date: 20140106
  Receipt Date: 20140106
  Transmission Date: 20141002
  Serious: No
  Sender: FDA-Public Use
  Company Number: US-PFIZER INC-2014002323

PATIENT
  Age: 36 Year
  Sex: Female
  Weight: 72.11 kg

DRUGS (1)
  1. ADVIL [Suspect]
     Indication: HEADACHE
     Dosage: 400 MG, 2X/DAY (TAKING 2 TABLETS OF 200MG)
     Dates: start: 20140102

REACTIONS (1)
  - Drug ineffective [Unknown]
